FAERS Safety Report 8025234-9 (Version None)
Quarter: 2012Q1

REPORT INFORMATION
  Report Type: 
  Country: None (occurrence: None)
  Receive Date: 20120105
  Receipt Date: 20111227
  Transmission Date: 20120608
  Serious: Yes (Hospitalization, Other)
  Sender: FDA-Public Use
  Company Number: SE-ABBOTT-11P-150-0879989-00

PATIENT
  Sex: Female

DRUGS (2)
  1. HUMIRA [Suspect]
     Dates: start: 20110901
  2. HUMIRA [Suspect]
     Indication: ANKYLOSING SPONDYLITIS
     Route: 058
     Dates: start: 20110130, end: 20110213

REACTIONS (8)
  - POSTOPERATIVE WOUND INFECTION [None]
  - OEDEMA PERIPHERAL [None]
  - PROTEINURIA [None]
  - HEADACHE [None]
  - ASTHMA [None]
  - DYSPNOEA [None]
  - PRE-ECLAMPSIA [None]
  - BLOOD PRESSURE INCREASED [None]
